FAERS Safety Report 7576805-5 (Version None)
Quarter: 2011Q2

REPORT INFORMATION
  Report Type: 
  Country: None (occurrence: None)
  Receive Date: 20110624
  Receipt Date: 20110624
  Transmission Date: 20111010
  Serious: Yes (Life-Threatening)
  Sender: FDA-Public Use
  Company Number: None

PATIENT
  Sex: Male
  Weight: 77.1115 kg

DRUGS (1)
  1. REMICADE [Suspect]
     Dosage: YEARS OF USE

REACTIONS (1)
  - B-CELL TYPE ACUTE LEUKAEMIA [None]
